FAERS Safety Report 5089375-0 (Version None)
Quarter: 2006Q3

REPORT INFORMATION
  Report Type: 
  Country: None (occurrence: None)
  Receive Date: 20060822
  Receipt Date: 20060731
  Transmission Date: 20061208
  Serious: Yes (Hospitalization)
  Sender: FDA-Public Use
  Company Number: US200608000237

PATIENT
  Sex: Female

DRUGS (2)
  1. FORTEO [Suspect]
     Dates: start: 20050501
  2. FORTEO [Concomitant]

REACTIONS (7)
  - ARTHRALGIA [None]
  - ARTHRITIS [None]
  - HIP ARTHROPLASTY [None]
  - JOINT RANGE OF MOTION DECREASED [None]
  - JOINT SWELLING [None]
  - PAIN IN EXTREMITY [None]
  - PHARMACEUTICAL PRODUCT COMPLAINT [None]
